FAERS Safety Report 9529737 (Version 2)
Quarter: 2013Q3

REPORT INFORMATION
  Report Type: Report from Study
  Country: JP (occurrence: JP)
  Receive Date: 20130917
  Receipt Date: 20130917
  Transmission Date: 20140515
  Serious: Yes (Life-Threatening, Hospitalization, Other)
  Sender: FDA-Public Use
  Company Number: JP-ABBVIE-09P-087-0561809-00

PATIENT
  Age: 79 Year
  Sex: Female
  Weight: 66.1 kg

DRUGS (10)
  1. HUMIRA 40 MG/ 0.8 ML PRE-FILLED SYRINGE [Suspect]
     Indication: RHEUMATOID ARTHRITIS
     Route: 058
     Dates: start: 20081029, end: 20081127
  2. PREDNISOLONE [Suspect]
     Indication: RHEUMATOID ARTHRITIS
  3. BETAMETHASONE/D-CHLORPHENIRAMINE MALEATE [Concomitant]
     Indication: RHEUMATOID ARTHRITIS
     Dosage: 2T
     Route: 048
     Dates: end: 20090427
  4. ALFACALCIDOL [Concomitant]
     Indication: PRODUCT USED FOR UNKNOWN INDICATION
  5. ISONIAZID [Concomitant]
     Indication: ANTIBIOTIC PROPHYLAXIS
     Dates: start: 20081008, end: 20090303
  6. PYRIDOXAL PHOSPHATE HYDRATE [Concomitant]
     Indication: PRODUCT USED FOR UNKNOWN INDICATION
     Dates: start: 20081008, end: 20090303
  7. LANSOPRAZOLE [Concomitant]
     Indication: PRODUCT USED FOR UNKNOWN INDICATION
  8. TEPRENONE [Concomitant]
     Indication: PRODUCT USED FOR UNKNOWN INDICATION
     Dates: end: 20090303
  9. MOSAPRIDE CITRATE HYDRATE [Concomitant]
     Indication: PRODUCT USED FOR UNKNOWN INDICATION
  10. SODIUM RISEDRONATE HYDRATE [Concomitant]
     Indication: PRODUCT USED FOR UNKNOWN INDICATION

REACTIONS (8)
  - Pulmonary embolism [Recovered/Resolved]
  - Depressed level of consciousness [Unknown]
  - Asthenia [Unknown]
  - Hypoxia [Unknown]
  - Fractured sacrum [Recovering/Resolving]
  - Pubis fracture [Recovering/Resolving]
  - Pneumocystis jirovecii pneumonia [Unknown]
  - Fall [Unknown]
